FAERS Safety Report 10745436 (Version 1)
Quarter: 2015Q1

REPORT INFORMATION
  Report Type: Spontaneous
  Country: US (occurrence: None)
  Receive Date: 20150127
  Receipt Date: 20150127
  Transmission Date: 20150721
  Serious: Yes (Hospitalization, Disabling, Congenital Anomaly, Other)
  Sender: FDA-Public Use
  Company Number: None

PATIENT
  Sex: Male

DRUGS (5)
  1. RISPERDAL [Suspect]
     Active Substance: RISPERIDONE
     Indication: SCHIZOPHRENIA
     Dosage: INSIDE YES BY MOUTH
  2. RISPERDAL [Suspect]
     Active Substance: RISPERIDONE
     Indication: ARTHRITIS
     Dosage: INSIDE YES BY MOUTH
  3. VITAMINS [Concomitant]
     Active Substance: VITAMINS
  4. VIOXX [Suspect]
     Active Substance: ROFECOXIB
     Indication: ARTHRITIS
     Route: 048
     Dates: start: 2003, end: 2013
  5. ASPRIN [Concomitant]
     Active Substance: ASPIRIN

REACTIONS (8)
  - Hypoaesthesia [None]
  - Unevaluable event [None]
  - Myocardial infarction [None]
  - Heart rate increased [None]
  - Heart rate decreased [None]
  - Breast enlargement [None]
  - Cerebrovascular accident [None]
  - Feeling jittery [None]
